APPROVED DRUG PRODUCT: EXTENDED PHENYTOIN SODIUM
Active Ingredient: PHENYTOIN SODIUM
Strength: 30MG EXTENDED
Dosage Form/Route: CAPSULE;ORAL
Application: A040759 | Product #001
Applicant: WOCKHARDT LTD
Approved: Dec 18, 2007 | RLD: No | RS: No | Type: DISCN